FAERS Safety Report 25026524 (Version 1)
Quarter: 2025Q1

REPORT INFORMATION
  Report Type: Report from Study
  Country: US (occurrence: US)
  Receive Date: 20250301
  Receipt Date: 20250301
  Transmission Date: 20250408
  Serious: Yes (Other)
  Sender: ABBVIE
  Company Number: US-ABBVIE-6071573

PATIENT
  Age: 56 Year
  Sex: Female

DRUGS (2)
  1. RINVOQ [Suspect]
     Active Substance: UPADACITINIB
     Indication: Rheumatoid arthritis
     Route: 048
     Dates: start: 20211006
  2. RINVOQ [Suspect]
     Active Substance: UPADACITINIB
     Indication: Rheumatoid arthritis
     Route: 048

REACTIONS (14)
  - Disability [Unknown]
  - Aneurysm [Unknown]
  - Attention deficit hyperactivity disorder [Unknown]
  - Hand deformity [Unknown]
  - Rash papular [Unknown]
  - White blood cell count increased [Unknown]
  - Autoimmune disorder [Unknown]
  - Confusional state [Unknown]
  - Stress [Unknown]
  - Anxiety [Unknown]
  - Asthenopia [Unknown]
  - Swelling [Unknown]
  - Weight increased [Unknown]
  - Fatigue [Unknown]

NARRATIVE: CASE EVENT DATE: 20211006
